FAERS Safety Report 6278406-8 (Version None)
Quarter: 2009Q3

REPORT INFORMATION
  Report Type: 
  Country: None (occurrence: None)
  Receive Date: 20090722
  Receipt Date: 20090713
  Transmission Date: 20100115
  Serious: Yes (Life-Threatening, Hospitalization, Disabling)
  Sender: FDA-Public Use
  Company Number: PL-GENENTECH-252064

PATIENT
  Sex: Male
  Weight: 64 kg

DRUGS (2)
  1. BEVACIZUMAB [Suspect]
     Indication: NON-SMALL CELL LUNG CANCER
     Dosage: 970 MG, Q3W
     Route: 042
     Dates: start: 20070717, end: 20070925
  2. ROCEPHIN [Concomitant]
     Indication: DRUG USE FOR UNKNOWN INDICATION
     Dates: start: 20070925

REACTIONS (3)
  - CREATININE RENAL CLEARANCE DECREASED [None]
  - FATIGUE [None]
  - HAEMOGLOBIN DECREASED [None]
